FAERS Safety Report 8329443-0 (Version None)
Quarter: 2012Q2

REPORT INFORMATION
  Report Type: 
  Country: None (occurrence: None)
  Receive Date: 20120502
  Receipt Date: 20120424
  Transmission Date: 20120825
  Serious: Yes (Hospitalization, Other)
  Sender: FDA-Public Use
  Company Number: JP-VERTEX PHARMACEUTICALS INC.-AE-2012-006054

PATIENT
  Age: 71 Year
  Sex: Male

DRUGS (10)
  1. TELAVIC (TELAPREVIR) [Suspect]
     Route: 048
     Dates: start: 20120301, end: 20120320
  2. ACETAMINOPHEN [Concomitant]
     Route: 048
     Dates: start: 20120118
  3. TELAVIC (TELAPREVIR) [Suspect]
     Indication: HEPATITIS C
     Route: 048
     Dates: start: 20120117, end: 20120229
  4. RIBAVIRIN [Concomitant]
     Indication: HEPATITIS C
     Route: 048
     Dates: start: 20120117, end: 20120130
  5. ZANTAC [Concomitant]
     Route: 048
  6. PRIMPERAN TAB [Concomitant]
     Route: 048
     Dates: start: 20120126
  7. PEGINTERFERON ALFA-2B [Concomitant]
     Indication: HEPATITIS C
     Route: 051
     Dates: start: 20120117, end: 20120327
  8. RIBAVIRIN [Concomitant]
     Route: 048
     Dates: start: 20120131, end: 20120320
  9. TAMIFLU [Concomitant]
     Route: 048
  10. GLUFAST [Concomitant]
     Route: 048

REACTIONS (2)
  - AMYLASE INCREASED [None]
  - ANAEMIA [None]
